FAERS Safety Report 19807263 (Version 1)
Quarter: 2021Q3

REPORT INFORMATION
  Report Type: Spontaneous
  Country: SA (occurrence: SA)
  Receive Date: 20210908
  Receipt Date: 20210908
  Transmission Date: 20211014
  Serious: Yes (Hospitalization)
  Sender: FDA-Public Use
  Company Number: SA-ASTRAZENECA-2021A715264

PATIENT
  Age: 56 Year
  Sex: Female

DRUGS (1)
  1. OMEPRAZOLE. [Suspect]
     Active Substance: OMEPRAZOLE
     Indication: GASTROOESOPHAGEAL REFLUX DISEASE
     Route: 065

REACTIONS (6)
  - Decreased appetite [Unknown]
  - Hyporeflexia [Unknown]
  - Muscular weakness [Recovering/Resolving]
  - Dysarthria [Unknown]
  - Hyponatraemia [Recovering/Resolving]
  - Acute disseminated encephalomyelitis [Recovering/Resolving]
